FAERS Safety Report 23615392 (Version 1)
Quarter: 2024Q1

REPORT INFORMATION
  Report Type: Spontaneous
  Country: US (occurrence: US)
  Receive Date: 20240311
  Receipt Date: 20240311
  Transmission Date: 20240410
  Serious: No
  Sender: FDA-Public Use
  Company Number: US-BRISTOL-MYERS SQUIBB COMPANY-2024-038347

PATIENT
  Age: 58 Year
  Sex: Female

DRUGS (1)
  1. REVLIMID [Suspect]
     Active Substance: LENALIDOMIDE
     Indication: Myelodysplastic syndrome
     Dosage: FREQUENCY: FOR 21 DAYS
     Route: 048
     Dates: start: 202402

REACTIONS (4)
  - Swelling [Unknown]
  - Rash [Unknown]
  - Epistaxis [Unknown]
  - Haemoptysis [Unknown]
